FAERS Safety Report 6120054-4 (Version None)
Quarter: 2009Q1

REPORT INFORMATION
  Report Type: 
  Country: None (occurrence: None)
  Receive Date: 20090316
  Receipt Date: 20090309
  Transmission Date: 20090719
  Serious: Yes (Other)
  Sender: FDA-Public Use
  Company Number: US-AMGEN-QUU334740

PATIENT
  Sex: Female
  Weight: 43.6 kg

DRUGS (7)
  1. ENBREL [Suspect]
     Indication: RHEUMATOID ARTHRITIS
     Route: 058
     Dates: start: 20001213
  2. SYNTHROID [Concomitant]
     Dates: start: 20070307
  3. MOBIC [Concomitant]
  4. VASOTEC [Concomitant]
  5. FLONASE [Concomitant]
  6. NEXIUM [Concomitant]
  7. FOSAMAX [Concomitant]

REACTIONS (3)
  - DIARRHOEA [None]
  - LACTOSE INTOLERANCE [None]
  - WEIGHT DECREASED [None]
